FAERS Safety Report 4871932-5 (Version None)
Quarter: 2005Q4

REPORT INFORMATION
  Report Type: 
  Country: None (occurrence: None)
  Receive Date: 20051230
  Receipt Date: 20051221
  Transmission Date: 20060501
  Serious: Yes (Disabling, Other)
  Sender: FDA-Public Use
  Company Number: 2005167506

PATIENT
  Age: 59 Year
  Sex: Male
  Weight: 68 kg

DRUGS (3)
  1. AMLODIPINE [Suspect]
     Indication: HYPERTENSION
     Dosage: 5 MG (5 MG, 1 IN 1 D), ORAL
     Route: 048
     Dates: start: 20040208, end: 20041101
  2. EVION (TOCOPHERYL ACETATE) [Concomitant]
  3. BECOSULES (B-COMPLEX VITAMINS, VITAMIN C) [Concomitant]

REACTIONS (5)
  - LETHARGY [None]
  - LIPIDS INCREASED [None]
  - MYALGIA [None]
  - OEDEMA PERIPHERAL [None]
  - WEIGHT DECREASED [None]
